FAERS Safety Report 22252726 (Version 1)
Quarter: 2023Q2

REPORT INFORMATION
  Report Type: Report from Study
  Country: HU (occurrence: HU)
  Receive Date: 20230426
  Receipt Date: 20230426
  Transmission Date: 20230722
  Serious: Yes (Hospitalization)
  Sender: FDA-Public Use
  Company Number: HU-ABBVIE-4740379

PATIENT
  Sex: Female

DRUGS (6)
  1. CARBIDOPA\LEVODOPA [Suspect]
     Active Substance: CARBIDOPA\LEVODOPA
     Indication: Parkinson^s disease
     Dosage: MORNING DOSE: 8.0 ML; CONTINUOUS DOSE: 4.0 ML/HOUR; EXTRA DOSE: 3.0 ML
     Route: 050
     Dates: start: 20190505
  2. CARBIDOPA\LEVODOPA [Suspect]
     Active Substance: CARBIDOPA\LEVODOPA
  3. CARBIDOPA\ENTACAPONE\LEVODOPA [Concomitant]
     Active Substance: CARBIDOPA\ENTACAPONE\LEVODOPA
     Indication: Parkinson^s disease
     Dosage: 100 MG LEVODOPA, 25 MG CARBIDOPA, 200 MG ENTACAPONE/TABLET
     Route: 048
  4. CAPTOPRIL [Concomitant]
     Active Substance: CAPTOPRIL
     Indication: Blood pressure management
     Dosage: FORM STRENGTH: 12.5 MG
     Route: 048
     Dates: start: 201901
  5. AMLODIPINE BESYLATE\PERINDOPRIL ARGININE [Concomitant]
     Active Substance: AMLODIPINE BESYLATE\PERINDOPRIL ARGININE
     Indication: Blood pressure management
     Dosage: 3.5 MG PERINDOPRIL, 2.5 MG AMLODIPIN / TABLET
     Route: 048
     Dates: start: 201901
  6. PERINDOPRIL ARGININE [Concomitant]
     Active Substance: PERINDOPRIL ARGININE
     Indication: Blood pressure management
     Dosage: FORM STRENGTH: 5 MILLIGRAM
     Route: 048
     Dates: start: 201901

REACTIONS (2)
  - Hyperkinesia [Unknown]
  - Social problem [Unknown]
